FAERS Safety Report 4775831-9 (Version None)
Quarter: 2005Q3

REPORT INFORMATION
  Report Type: 
  Country: None (occurrence: None)
  Receive Date: 20050922
  Receipt Date: 20050609
  Transmission Date: 20060218
  Serious: Yes (Death, Hospitalization, Disabling)
  Sender: FDA-Public Use
  Company Number: US-MERCK-0506USA01858

PATIENT
  Age: 70 Year
  Sex: Female
  Weight: 64 kg

DRUGS (10)
  1. VIOXX [Suspect]
     Route: 048
     Dates: start: 20000101, end: 20030601
  2. MONOPRIL [Concomitant]
     Route: 065
     Dates: start: 20020101, end: 20030917
  3. ATENOLOL [Concomitant]
     Route: 065
     Dates: start: 20000101, end: 20030101
  4. PLAVIX [Concomitant]
     Route: 065
     Dates: start: 19990101, end: 20030917
  5. AMARYL [Concomitant]
     Route: 065
     Dates: start: 20000901, end: 20030101
  6. GLUCOPHAGE [Concomitant]
     Route: 065
  7. PAXIL [Concomitant]
     Route: 065
     Dates: start: 20020101, end: 20020701
  8. ASPIRIN [Concomitant]
     Route: 065
     Dates: start: 19900101, end: 20030917
  9. DEPAKOTE [Concomitant]
     Route: 065
     Dates: start: 20010101, end: 20020101
  10. GLUCOTROL [Concomitant]
     Route: 065

REACTIONS (45)
  - ACUTE PRERENAL FAILURE [None]
  - ANAEMIA POSTOPERATIVE [None]
  - ARTHRALGIA [None]
  - ASTHENIA [None]
  - ATRIAL FIBRILLATION [None]
  - BLOOD CHOLESTEROL INCREASED [None]
  - BLOOD POTASSIUM DECREASED [None]
  - CEREBRAL ATHEROSCLEROSIS [None]
  - CEREBROVASCULAR ACCIDENT [None]
  - CHOLECYSTITIS ACUTE [None]
  - COMA [None]
  - CONVULSION [None]
  - DEPRESSED LEVEL OF CONSCIOUSNESS [None]
  - DIABETES MELLITUS [None]
  - DIABETIC RETINOPATHY [None]
  - DIARRHOEA [None]
  - DIZZINESS [None]
  - DYSPHAGIA [None]
  - FALL [None]
  - GASTROOESOPHAGEAL REFLUX DISEASE [None]
  - HIP FRACTURE [None]
  - HYPERKALAEMIA [None]
  - HYPERTENSION [None]
  - HYPOACUSIS [None]
  - HYPOTHYROIDISM [None]
  - HYPOVOLAEMIA [None]
  - INSOMNIA [None]
  - INTESTINAL ISCHAEMIA [None]
  - MALNUTRITION [None]
  - MYOCARDIAL INFARCTION [None]
  - NEUROPATHY PERIPHERAL [None]
  - PANCREATITIS [None]
  - PERIARTHRITIS [None]
  - PERIPHERAL VASCULAR DISORDER [None]
  - PNEUMONIA ASPIRATION [None]
  - RENAL FAILURE [None]
  - RESPIRATORY FAILURE [None]
  - SEPSIS [None]
  - SEPTIC SHOCK [None]
  - SHOULDER PAIN [None]
  - STRESS INCONTINENCE [None]
  - TRANSIENT ISCHAEMIC ATTACK [None]
  - UPPER RESPIRATORY TRACT INFECTION [None]
  - URINARY TRACT INFECTION [None]
  - URINARY TRACT INFECTION BACTERIAL [None]
